FAERS Safety Report 4714950-X (Version None)
Quarter: 2005Q3

REPORT INFORMATION
  Report Type: 
  Country: None (occurrence: None)
  Receive Date: 20050715
  Receipt Date: 20040503
  Transmission Date: 20060218
  Serious: Yes (Hospitalization, Other)
  Sender: FDA-Public Use
  Company Number: BE-JNJFOC-20040305527

PATIENT
  Age: 1 Month
  Sex: Male

DRUGS (8)
  1. CISAPRIDE [Suspect]
     Route: 065
  2. CISAPRIDE [Suspect]
     Route: 065
  3. CISAPRIDE [Suspect]
     Route: 065
  4. CISAPRIDE [Suspect]
     Route: 065
  5. TINSET [Concomitant]
     Route: 065
  6. BICLAR [Concomitant]
     Indication: DRUG USE FOR UNKNOWN INDICATION
     Route: 065
  7. EUKALYPTINE [Concomitant]
     Indication: DRUG USE FOR UNKNOWN INDICATION
     Route: 065
  8. LYSOX [Concomitant]
     Indication: DRUG USE FOR UNKNOWN INDICATION
     Route: 065

REACTIONS (7)
  - ADENOVIRUS INFECTION [None]
  - BRONCHITIS [None]
  - ELECTROCARDIOGRAM QT CORRECTED INTERVAL PROLONGED [None]
  - LYMPHADENITIS [None]
  - NASOPHARYNGITIS [None]
  - TACHYCARDIA [None]
  - TESTICULAR RETRACTION [None]
